FAERS Safety Report 9459182 (Version 1)
Quarter: 2013Q3

REPORT INFORMATION
  Report Type: Spontaneous
  Country: PT (occurrence: PT)
  Receive Date: 20130814
  Receipt Date: 20130814
  Transmission Date: 20140515
  Serious: Yes (Other)
  Sender: FDA-Public Use
  Company Number: PT-ABBOTT-12P-130-0959404-00

PATIENT
  Age: 36 Year
  Sex: Female

DRUGS (7)
  1. ADALIMUMAB [Suspect]
     Indication: CROHN^S DISEASE
     Dosage: AT WEEK 0
  2. ADALIMUMAB [Suspect]
     Dosage: AT WEEK 2
  3. ADALIMUMAB [Suspect]
     Dosage: MAINTENANCE DOSE
  4. ADALIMUMAB [Suspect]
  5. PREDNISONE [Concomitant]
     Indication: CROHN^S DISEASE
     Route: 048
  6. PREDNISONE [Concomitant]
     Route: 048
  7. PREDNISONE [Concomitant]
     Route: 048

REACTIONS (8)
  - Henoch-Schonlein purpura [Recovered/Resolved]
  - Purpura [Recovered/Resolved]
  - Arthralgia [Recovered/Resolved]
  - Purpura [Recovered/Resolved]
  - Proteinuria [Recovered/Resolved]
  - Haematuria [Recovered/Resolved]
  - Henoch-Schonlein purpura [Recovered/Resolved]
  - Hypersensitivity vasculitis [Recovered/Resolved]
